FAERS Safety Report 23604417 (Version 1)
Quarter: 2024Q1

REPORT INFORMATION
  Report Type: Spontaneous
  Country: US (occurrence: US)
  Receive Date: 20240307
  Receipt Date: 20240307
  Transmission Date: 20240410
  Serious: No
  Sender: FDA-Public Use
  Company Number: US-ABBVIE-5667757

PATIENT
  Sex: Female

DRUGS (1)
  1. CREON [Suspect]
     Active Substance: PANCRELIPASE AMYLASE\PANCRELIPASE LIPASE\PANCRELIPASE PROTEASE
     Indication: Product used for unknown indication
     Route: 048

REACTIONS (7)
  - Pain [Unknown]
  - Weight decreased [Unknown]
  - Intentional product misuse [Unknown]
  - Constipation [Unknown]
  - Rash [Unknown]
  - Urticaria [Unknown]
  - Malaise [Unknown]
